FAERS Safety Report 8180837-6 (Version None)
Quarter: 2012Q1

REPORT INFORMATION
  Report Type: 
  Country: None (occurrence: None)
  Receive Date: 20120302
  Receipt Date: 20120223
  Transmission Date: 20120608
  Serious: Yes (Death, Life-Threatening, Other)
  Sender: FDA-Public Use
  Company Number: JP-GENZYME-THYM-1002026

PATIENT
  Sex: Female
  Weight: 45 kg

DRUGS (40)
  1. FAMOTIDINE [Concomitant]
     Indication: PROPHYLAXIS AGAINST GASTROINTESTINAL ULCER
     Dosage: UNK
     Dates: start: 20100609, end: 20100625
  2. MYCOPHENOLATE MOFETIL [Concomitant]
     Indication: PROPHYLAXIS AGAINST GRAFT VERSUS HOST DISEASE
     Dosage: UNK
     Dates: start: 20100902
  3. DIAZEPAM [Concomitant]
     Indication: HYPERVENTILATION
     Dosage: UNK
     Dates: start: 20100908, end: 20101111
  4. VALACYCLOVIR HYDROCHLORIDE [Concomitant]
     Indication: ANTIVIRAL PROPHYLAXIS
     Dosage: UNK
     Dates: start: 20101002, end: 20101101
  5. LANSOPRAZOLE [Concomitant]
     Indication: PROPHYLAXIS AGAINST GASTROINTESTINAL ULCER
     Dosage: UNK
     Dates: start: 20101113
  6. FLUDARABINE PHOSPHATE [Concomitant]
     Indication: BONE MARROW CONDITIONING REGIMEN
     Dosage: 30 MG/M2, QD
  7. PREDNISONE TAB [Concomitant]
     Indication: GRAFT VERSUS HOST DISEASE
     Dosage: UNK
     Dates: start: 20100815
  8. FILGRASTIM [Concomitant]
     Indication: WHITE BLOOD CELL COUNT INCREASED
     Dosage: UNK
     Dates: start: 20100923, end: 20101001
  9. METHYLPREDNISOLONE [Concomitant]
     Indication: PROPHYLAXIS AGAINST GRAFT VERSUS HOST DISEASE
  10. MELPHALAN HYDROCHLORIDE [Concomitant]
     Indication: BONE MARROW CONDITIONING REGIMEN
     Dosage: 70 MG/M2, QD
  11. URSODIOL [Concomitant]
     Indication: PROPHYLAXIS
     Dosage: UNK
     Dates: start: 20100609
  12. ROXITHROMYCIN [Concomitant]
     Indication: ANTIBIOTIC PROPHYLAXIS
     Dosage: UNK
     Dates: start: 20100710, end: 20100825
  13. CEFEPIME HYDROCHLORIDE [Concomitant]
     Indication: INFECTION PROPHYLAXIS
     Dosage: UNK
     Dates: start: 20100609, end: 20100625
  14. DOPAMINE HCL [Concomitant]
     Indication: BLOOD ANTIDIURETIC HORMONE
     Dosage: UNK
     Dates: start: 20100818, end: 20100827
  15. ANTITHROMBIN III HUMAN [Concomitant]
     Indication: SUPPLEMENTATION THERAPY
     Dosage: UNK
     Dates: start: 20100820, end: 20100822
  16. ZOSYN [Concomitant]
     Indication: PROPHYLAXIS
     Dosage: UNK
     Dates: start: 20100831, end: 20100910
  17. MEROPENEM [Concomitant]
     Indication: PROPHYLAXIS
     Dosage: UNK
     Dates: start: 20100907, end: 20100924
  18. CYTARABINE [Concomitant]
     Indication: BONE MARROW CONDITIONING REGIMEN
     Dosage: 1 G/M2, UNK
  19. MICONAZOLE NITRATE [Concomitant]
     Indication: ORAL CANDIDIASIS
     Dosage: UNK
     Dates: start: 20101021, end: 20101027
  20. CLOBAZAM [Concomitant]
     Indication: CONVULSION PROPHYLAXIS
     Dosage: UNK
     Dates: start: 20101113
  21. TACROLIMUS [Concomitant]
     Indication: PROPHYLAXIS AGAINST GRAFT VERSUS HOST DISEASE
     Dosage: UNK
     Dates: start: 20100609, end: 20100710
  22. LENOGRASTIM [Concomitant]
     Indication: WHITE BLOOD CELL COUNT INCREASED
     Dosage: UNK
     Dates: start: 20100616, end: 20100622
  23. IMIPENEM [Concomitant]
     Indication: INFECTION PROPHYLAXIS
     Dosage: UNK
     Dates: start: 20100626, end: 20100716
  24. TEICOPLANIN [Concomitant]
     Indication: INFECTION PROPHYLAXIS
     Dosage: UNK
     Dates: start: 20100626, end: 20100716
  25. FLUCONAZOLE [Concomitant]
     Indication: ANTIFUNGAL PROPHYLAXIS
     Dosage: UNK
     Dates: start: 20100609, end: 20100629
  26. FUROSEMIDE [Concomitant]
     Indication: OEDEMA
     Dosage: UNK
     Dates: start: 20100707, end: 20100718
  27. VORICONAZOLE [Concomitant]
     Indication: ANTIFUNGAL PROPHYLAXIS
     Dosage: UNK
     Dates: start: 20100707, end: 20100820
  28. RISPERIDONE [Concomitant]
     Indication: HYPERVENTILATION
     Dosage: UNK
     Dates: start: 20100908, end: 20101110
  29. PHENOBARBITAL TAB [Concomitant]
     Indication: CONVULSION PROPHYLAXIS
     Dosage: UNK
     Dates: start: 20101113
  30. HEPARIN [Concomitant]
     Indication: PRODUCT USED FOR UNKNOWN INDICATION
     Dosage: UNK
     Dates: start: 20100609, end: 20100713
  31. MICAFUNGIN SODIUM [Concomitant]
     Indication: ANTIFUNGAL PROPHYLAXIS
     Dosage: UNK
     Dates: start: 20100616, end: 20100706
  32. OMEPRAZOLE [Concomitant]
     Indication: PROPHYLAXIS AGAINST GASTROINTESTINAL ULCER
     Dosage: UNK
     Dates: start: 20100116, end: 20100706
  33. FOSCARNET SODIUM [Concomitant]
     Indication: ANTIVIRAL PROPHYLAXIS
     Dosage: UNK
     Dates: start: 20100626, end: 20100706
  34. AMPHOTERICIN B [Concomitant]
     Indication: PNEUMONIA FUNGAL
     Dosage: UNK
     Dates: start: 20101213
  35. THROMBOMODULIN ALFA [Concomitant]
     Indication: DISSEMINATED INTRAVASCULAR COAGULATION
     Dosage: UNK
     Dates: start: 20101201, end: 20101207
  36. THYMOGLOBULIN [Suspect]
     Indication: BONE MARROW CONDITIONING REGIMEN
     Dosage: 50 MG, QD
     Route: 042
     Dates: start: 20100609, end: 20100610
  37. TACROLIMUS [Concomitant]
     Indication: PREMEDICATION
  38. GRENOL [Concomitant]
     Indication: INTRACRANIAL HYPOTENSION
     Dosage: UNK
     Dates: start: 20101112
  39. ACYCLOVIR [Concomitant]
     Indication: ANTIVIRAL PROPHYLAXIS
     Dosage: UNK
     Dates: start: 20100609, end: 20100620
  40. ACYCLOVIR [Concomitant]
     Dosage: UNK
     Dates: start: 20100616, end: 20100625

REACTIONS (8)
  - THROMBOTIC MICROANGIOPATHY [None]
  - SEPSIS [None]
  - CYTOMEGALOVIRUS TEST POSITIVE [None]
  - HAEMATURIA [None]
  - ACUTE GRAFT VERSUS HOST DISEASE IN SKIN [None]
  - POST TRANSPLANT LYMPHOPROLIFERATIVE DISORDER [None]
  - VIRAL HAEMORRHAGIC CYSTITIS [None]
  - INTERSTITIAL LUNG DISEASE [None]
